FAERS Safety Report 12927739 (Version 2)
Quarter: 2016Q4

REPORT INFORMATION
  Report Type: Spontaneous
  Country: TR (occurrence: TR)
  Receive Date: 20161109
  Receipt Date: 20161119
  Transmission Date: 20170207
  Serious: Yes (Death, Hospitalization)
  Sender: FDA-Public Use
  Company Number: TR-BAXTER-2016BAX056578

PATIENT
  Age: 67 Year
  Sex: Female
  Weight: 96 kg

DRUGS (4)
  1. PHYSIONEAL 40 %2.27 [Suspect]
     Active Substance: DEXTROSE\SODIUM BICARBONATE\SODIUM CHLORIDE\SODIUM LACTATE
     Indication: PERITONEAL DIALYSIS
     Route: 033
     Dates: start: 20161012, end: 20161015
  2. PHYSIONEAL 40 %2.27 [Suspect]
     Active Substance: DEXTROSE\SODIUM BICARBONATE\SODIUM CHLORIDE\SODIUM LACTATE
     Route: 033
  3. EXTRANEAL [Suspect]
     Active Substance: CALCIUM CHLORIDE\ICODEXTRIN\MAGNESIUM CHLORIDE\SODIUM CHLORIDE\SODIUM LACTATE
     Indication: PERITONEAL DIALYSIS
     Route: 033
  4. DIANEAL [Suspect]
     Active Substance: CALCIUM CHLORIDE\DEXTROSE\MAGNESIUM CHLORIDE\SODIUM CHLORIDE\SODIUM LACTATE
     Indication: PERITONEAL DIALYSIS
     Route: 033

REACTIONS (4)
  - Respiratory distress [Fatal]
  - Cardiac arrest [Fatal]
  - Electrolyte imbalance [Fatal]
  - Drug administration error [Recovered/Resolved]

NARRATIVE: CASE EVENT DATE: 20161012
